FAERS Safety Report 15475810 (Version 1)
Quarter: 2018Q4

REPORT INFORMATION
  Report Type: Spontaneous
  Country: CH (occurrence: CH)
  Receive Date: 20181009
  Receipt Date: 20181009
  Transmission Date: 20190205
  Serious: Yes (Other)
  Sender: FDA-Public Use
  Company Number: CH-ASTRAZENECA-2018SF29089

PATIENT
  Age: 24519 Day
  Sex: Male

DRUGS (18)
  1. MOVICOL [Concomitant]
     Active Substance: POLYETHYLENE GLYCOL 3350\POTASSIUM CHLORIDE\SODIUM BICARBONATE\SODIUM CHLORIDE
     Dates: start: 20180904
  2. ATORVASTATIN [Suspect]
     Active Substance: ATORVASTATIN
     Route: 048
  3. PRADIF T [Suspect]
     Active Substance: TAMSULOSIN HYDROCHLORIDE
     Route: 048
  4. IMPORTAL [Concomitant]
     Active Substance: LACTITOL
  5. XIFAXAN [Concomitant]
     Active Substance: RIFAXIMIN
  6. NOVORAPID [Concomitant]
     Active Substance: INSULIN ASPART
     Dosage: AS NECESSARY
  7. ACIDUM FOLICUM STREULI [Concomitant]
     Active Substance: FOLIC ACID
     Dates: start: 20180903
  8. CALCIMAGON D3 [Concomitant]
     Active Substance: CALCIUM\CHOLECALCIFEROL
     Dates: start: 20180903
  9. ANXIOLIT [Concomitant]
     Active Substance: OXAZEPAM
     Dosage: AS NECESSARY
     Dates: start: 20180901
  10. TORASEMIDE [Concomitant]
     Active Substance: TORSEMIDE
  11. ASPIRIN CARDIO [Concomitant]
     Active Substance: ASPIRIN
  12. TRESIBA [Concomitant]
     Active Substance: INSULIN DEGLUDEC
  13. BENERVA [Concomitant]
     Active Substance: THIAMINE HYDROCHLORIDE
  14. MORPHINE HCL [Concomitant]
     Active Substance: MORPHINE HYDROCHLORIDE
     Dosage: AS NECESSARY
     Dates: start: 20180903
  15. NEXIUM MUPS [Suspect]
     Active Substance: ESOMEPRAZOLE MAGNESIUM
     Route: 048
     Dates: start: 20180903
  16. ALDACTONE [Suspect]
     Active Substance: SPIRONOLACTONE
     Route: 048
  17. CLEXANE [Concomitant]
     Active Substance: ENOXAPARIN SODIUM
     Dates: start: 20180903
  18. BECOZYME C FORTE [Concomitant]

REACTIONS (1)
  - Cholestatic liver injury [Not Recovered/Not Resolved]

NARRATIVE: CASE EVENT DATE: 20180907
